FAERS Safety Report 8336845-5 (Version None)
Quarter: 2012Q2

REPORT INFORMATION
  Report Type: 
  Country: None (occurrence: None)
  Receive Date: 20120504
  Receipt Date: 20120427
  Transmission Date: 20120825
  Serious: No
  Sender: FDA-Public Use
  Company Number: US-B.I. PHARMACEUTICALS,INC./RIDGEFIELD-2012-BP-09849PF

PATIENT
  Sex: Female

DRUGS (2)
  1. SPIRIVA [Suspect]
  2. LYRICA [Suspect]

REACTIONS (2)
  - PNEUMONIA [None]
  - DYSPHONIA [None]
